FAERS Safety Report 15262789 (Version 4)
Quarter: 2018Q3

REPORT INFORMATION
  Report Type: Spontaneous
  Country: US (occurrence: US)
  Receive Date: 20180809
  Receipt Date: 20180919
  Transmission Date: 20181010
  Serious: Yes (Hospitalization)
  Sender: FDA-Public Use
  Company Number: US-CELGENEUS-USA-20180801185

PATIENT
  Age: 47 Year
  Sex: Female

DRUGS (2)
  1. OTEZLA [Suspect]
     Active Substance: APREMILAST
     Indication: PSORIASIS
  2. OTEZLA [Suspect]
     Active Substance: APREMILAST
     Indication: PSORIASIS
     Dosage: 60 MILLIGRAM
     Route: 048
     Dates: start: 201807

REACTIONS (9)
  - Adverse drug reaction [Unknown]
  - Anxiety [Unknown]
  - Headache [Unknown]
  - Psoriasis [Unknown]
  - Cardiovascular disorder [Unknown]
  - Panic attack [Recovered/Resolved]
  - Hyperhidrosis [Unknown]
  - Atrial fibrillation [Unknown]
  - Insomnia [Unknown]

NARRATIVE: CASE EVENT DATE: 201807
